FAERS Safety Report 4915787-9 (Version None)
Quarter: 2006Q1

REPORT INFORMATION
  Report Type: 
  Country: None (occurrence: None)
  Receive Date: 20060214
  Receipt Date: 20060127
  Transmission Date: 20060701
  Serious: Yes (Hospitalization)
  Sender: FDA-Public Use
  Company Number: USA0510111127

PATIENT
  Age: 48 Year
  Sex: Male
  Weight: 99.8 kg

DRUGS (4)
  1. ZYPREXA [Suspect]
     Indication: SCHIZOAFFECTIVE DISORDER
     Dosage: 20 MG, ORAL
     Route: 048
     Dates: start: 20020701, end: 20031201
  2. PAXIL (PAROXETINE HYDROCHLORIDE) [Concomitant]
  3. DILANTIN [Concomitant]
  4. RISPERDAL/SWE/(RISPERIDONE) [Concomitant]

REACTIONS (4)
  - CONVULSION [None]
  - DIABETES MELLITUS NON-INSULIN-DEPENDENT [None]
  - RESPIRATORY FAILURE [None]
  - WEIGHT INCREASED [None]
